FAERS Safety Report 10050504 (Version 2)
Quarter: 2018Q3

REPORT INFORMATION
  Report Type: Spontaneous
  Country: US (occurrence: US)
  Receive Date: 20140401
  Receipt Date: 20180706
  Transmission Date: 20181010
  Serious: No
  Sender: FDA-Public Use
  Company Number: US-ASTRAZENECA-2013SE81403

PATIENT
  Age: 8992 Day
  Sex: Female
  Weight: 22.7 kg

DRUGS (5)
  1. NEXIUM [Suspect]
     Active Substance: ESOMEPRAZOLE MAGNESIUM
     Indication: ULCER
     Route: 048
     Dates: start: 201310
  2. NEXIUM [Suspect]
     Active Substance: ESOMEPRAZOLE MAGNESIUM
     Indication: EPIGASTRIC DISCOMFORT
     Route: 048
     Dates: start: 201310
  3. ALOVERT [Concomitant]
     Indication: HYPERSENSITIVITY
     Dosage: DAILY
  4. MIRALAX [Concomitant]
     Active Substance: POLYETHYLENE GLYCOL 3350
     Dosage: DAILY
  5. NEXIUM [Suspect]
     Active Substance: ESOMEPRAZOLE MAGNESIUM
     Indication: ACIDOSIS
     Route: 048
     Dates: start: 201310

REACTIONS (6)
  - Complication associated with device [Recovered/Resolved]
  - Off label use [Unknown]
  - Oral discomfort [Recovering/Resolving]
  - Eructation [Recovering/Resolving]
  - Product use in unapproved indication [Unknown]
  - Intentional product misuse [Unknown]

NARRATIVE: CASE EVENT DATE: 20131029
